FAERS Safety Report 20584520 (Version 8)
Quarter: 2024Q1

REPORT INFORMATION
  Report Type: Report from Study
  Country: CA (occurrence: CA)
  Receive Date: 20220311
  Receipt Date: 20240106
  Transmission Date: 20240410
  Serious: Yes (Hospitalization, Other)
  Sender: FDA-Public Use
  Company Number: CA-NOVARTISPH-NVSC2022CA055650

PATIENT
  Age: 67 Year
  Sex: Male
  Weight: 98 kg

DRUGS (30)
  1. ATORVASTATIN CALCIUM [Suspect]
     Active Substance: ATORVASTATIN CALCIUM
     Indication: Product used for unknown indication
     Dosage: UNK
     Route: 065
  2. METHOTREXATE [Suspect]
     Active Substance: METHOTREXATE
     Indication: Rheumatoid arthritis
     Dosage: UNK
     Route: 048
     Dates: start: 20000325
  3. METHOTREXATE [Suspect]
     Active Substance: METHOTREXATE
     Dosage: UNK (RESUMED IN OCT)
     Route: 048
  4. METHOTREXATE [Suspect]
     Active Substance: METHOTREXATE
     Dosage: UNK
     Route: 048
     Dates: start: 2017
  5. FOLIC ACID [Suspect]
     Active Substance: FOLIC ACID
     Indication: Product used for unknown indication
     Dosage: 5 MG, QW (1 EVERY 1 WEEKS)
     Route: 065
     Dates: start: 20171102
  6. LURASIDONE [Suspect]
     Active Substance: LURASIDONE
     Indication: Product used for unknown indication
     Dosage: UNK
     Route: 065
  7. OMEPRAZOLE [Suspect]
     Active Substance: OMEPRAZOLE
     Indication: Product used for unknown indication
     Dosage: 30 MG, QD (1 EVERY 1 DAYS)
     Route: 065
     Dates: start: 20220228
  8. LATUDA [Suspect]
     Active Substance: LURASIDONE HYDROCHLORIDE
     Indication: Product used for unknown indication
     Dosage: UNK
     Route: 065
     Dates: start: 20131122
  9. ENBREL [Concomitant]
     Active Substance: ETANERCEPT
     Indication: Product used for unknown indication
     Dosage: UNK
     Route: 065
     Dates: start: 20010505, end: 20131120
  10. ENBREL [Concomitant]
     Active Substance: ETANERCEPT
     Dosage: UNK
     Route: 065
     Dates: start: 2001, end: 2016
  11. ENBREL [Concomitant]
     Active Substance: ETANERCEPT
     Dosage: UNK
     Route: 065
  12. NAPROXEN [Concomitant]
     Active Substance: NAPROXEN
     Indication: Product used for unknown indication
     Dosage: UNK
     Route: 048
     Dates: start: 20211028
  13. FELODIPINE [Concomitant]
     Active Substance: FELODIPINE
     Indication: Product used for unknown indication
     Dosage: UNK (EXTENDED RELEASE)
     Route: 065
     Dates: start: 19950406, end: 20041115
  14. FELODIPINE [Concomitant]
     Active Substance: FELODIPINE
     Dosage: UNK
     Route: 065
  15. CYTOTEC [Concomitant]
     Active Substance: MISOPROSTOL
     Indication: Product used for unknown indication
     Dosage: UNK, PRN
     Route: 065
     Dates: start: 19970116, end: 20110930
  16. CYTOTEC [Concomitant]
     Active Substance: MISOPROSTOL
     Dosage: UNK
     Route: 065
  17. SULFASALAZINE [Concomitant]
     Active Substance: SULFASALAZINE
     Indication: Product used for unknown indication
     Dosage: UNK
     Route: 065
     Dates: start: 19910606, end: 20020522
  18. SULFASALAZINE [Concomitant]
     Active Substance: SULFASALAZINE
     Dosage: UNK
     Route: 065
  19. LIPITOR [Concomitant]
     Active Substance: ATORVASTATIN CALCIUM
     Indication: Product used for unknown indication
     Dosage: UNK, QD
     Route: 048
     Dates: start: 19980319
  20. LIPITOR [Concomitant]
     Active Substance: ATORVASTATIN CALCIUM
     Dosage: UNK
     Route: 065
  21. LIPITOR [Concomitant]
     Active Substance: ATORVASTATIN CALCIUM
     Dosage: UNK, QD
     Route: 048
     Dates: start: 19980319
  22. LIPITOR [Concomitant]
     Active Substance: ATORVASTATIN CALCIUM
     Dosage: UNK
     Route: 065
  23. PLAQUENIL [Concomitant]
     Active Substance: HYDROXYCHLOROQUINE SULFATE
     Indication: Product used for unknown indication
     Dosage: UNK
     Route: 065
     Dates: start: 20000111, end: 20020116
  24. CIPROFLOXACIN HYDROCHLORIDE [Concomitant]
     Active Substance: CIPROFLOXACIN HYDROCHLORIDE
     Indication: Product used for unknown indication
     Dosage: UNK
     Route: 065
     Dates: start: 20131120
  25. CIPROFLOXACIN HYDROCHLORIDE [Concomitant]
     Active Substance: CIPROFLOXACIN HYDROCHLORIDE
     Dosage: UNK
     Route: 065
  26. AVAPRO [Concomitant]
     Active Substance: IRBESARTAN
     Indication: Product used for unknown indication
     Dosage: UNK
     Route: 065
     Dates: start: 20061211, end: 20211028
  27. AVAPRO [Concomitant]
     Active Substance: IRBESARTAN
     Dosage: UNK
     Route: 065
  28. HYDROXYCHLOROQUINE SULFATE [Concomitant]
     Active Substance: HYDROXYCHLOROQUINE SULFATE
     Indication: Product used for unknown indication
     Dosage: UNK
     Route: 065
  29. HYDROXYCHLOROQUINE SULFATE [Concomitant]
     Active Substance: HYDROXYCHLOROQUINE SULFATE
     Dosage: UNK
     Route: 065
     Dates: start: 20000111, end: 20020116
  30. HYDROXYCHLOROQUINE SULFATE [Concomitant]
     Active Substance: HYDROXYCHLOROQUINE SULFATE
     Dosage: UNK
     Route: 065

REACTIONS (40)
  - Myositis [Unknown]
  - Anal fissure [Unknown]
  - Haematochezia [Unknown]
  - Rheumatoid arthritis [Unknown]
  - Joint swelling [Unknown]
  - Arthralgia [Unknown]
  - Peripheral swelling [Unknown]
  - Pain in extremity [Unknown]
  - Grip strength decreased [Unknown]
  - Pain [Unknown]
  - Musculoskeletal stiffness [Unknown]
  - Oedema [Unknown]
  - Joint effusion [Unknown]
  - Inflammation [Unknown]
  - Dysstasia [Unknown]
  - Gait disturbance [Unknown]
  - Nodule [Unknown]
  - Insomnia [Unknown]
  - Rash erythematous [Unknown]
  - Night sweats [Unknown]
  - Pleuritic pain [Unknown]
  - Raynaud^s phenomenon [Unknown]
  - Dry skin [Unknown]
  - Fall [Unknown]
  - Pain in jaw [Unknown]
  - Skin discolouration [Unknown]
  - Nail bed bleeding [Unknown]
  - Rales [Unknown]
  - Obstructive airways disorder [Unknown]
  - C-reactive protein increased [Unknown]
  - Red blood cell sedimentation rate increased [Unknown]
  - Thrombocytosis [Unknown]
  - Pleural effusion [Unknown]
  - Atelectasis [Unknown]
  - Spinal osteoarthritis [Unknown]
  - Blood albumin decreased [Unknown]
  - Hypoaesthesia [Unknown]
  - Rash macular [Unknown]
  - Fatigue [Unknown]
  - Chest pain [Unknown]

NARRATIVE: CASE EVENT DATE: 20220101
